FAERS Safety Report 18673944 (Version 6)
Quarter: 2021Q2

REPORT INFORMATION
  Report Type: Report from Study
  Country: CA (occurrence: CA)
  Receive Date: 20201228
  Receipt Date: 20210625
  Transmission Date: 20210717
  Serious: Yes (Other)
  Sender: FDA-Public Use
  Company Number: CA-FERRINGPH-2020FE09203

PATIENT
  Age: 56 Year
  Sex: Male

DRUGS (2)
  1. DEGARELIX [Suspect]
     Active Substance: DEGARELIX
     Indication: HORMONE-DEPENDENT PROSTATE CANCER
     Dosage: 80 MG, MONTHLY
     Route: 065
  2. DEGARELIX [Suspect]
     Active Substance: DEGARELIX
     Dosage: 240 MG, ONCE/SINGLE
     Route: 065
     Dates: start: 20200808, end: 20200808

REACTIONS (7)
  - Fatigue [Unknown]
  - Diabetes mellitus [Unknown]
  - Depression [Unknown]
  - Hot flush [Not Recovered/Not Resolved]
  - Injection site pain [Recovered/Resolved]
  - Hyperhidrosis [Not Recovered/Not Resolved]
  - Anxiety [Unknown]

NARRATIVE: CASE EVENT DATE: 2020
